FAERS Safety Report 10168654 (Version 2)
Quarter: 2014Q2

REPORT INFORMATION
  Report Type: Report from Study
  Country: AT (occurrence: AT)
  Receive Date: 20140513
  Receipt Date: 20140516
  Transmission Date: 20141212
  Serious: Yes (Hospitalization)
  Sender: FDA-Public Use
  Company Number: AT-ROCHE-1396164

PATIENT
  Age: 62 Year
  Sex: Male
  Weight: 87.2 kg

DRUGS (11)
  1. RITUXIMAB [Suspect]
     Indication: LYMPHOPLASMACYTOID LYMPHOMA/IMMUNOCYTOMA
     Dosage: MOST RECENT DOSE RECEIVED ON 17/APR/2014
     Route: 042
     Dates: start: 20140417
  2. BENDAMUSTINE [Suspect]
     Indication: LYMPHOPLASMACYTOID LYMPHOMA/IMMUNOCYTOMA
     Route: 042
     Dates: start: 20140417
  3. BENDAMUSTINE [Suspect]
     Route: 042
     Dates: start: 20140418
  4. BENDAMUSTINE [Suspect]
     Route: 042
     Dates: start: 20140419
  5. VOLTAREN [Concomitant]
     Indication: PAIN
     Route: 048
  6. TOBRADEX [Concomitant]
     Indication: DRY EYE
     Route: 048
  7. MOTILIUM [Concomitant]
     Indication: NAUSEA
     Route: 048
     Dates: start: 20140417
  8. TEMESTA (AUSTRIA) [Concomitant]
     Indication: PROPHYLAXIS
     Route: 048
  9. UROSIN [Concomitant]
     Indication: TUMOUR LYSIS SYNDROME
     Route: 048
  10. RATIOGRASTIM [Concomitant]
     Dosage: 48 MIO IE
     Route: 058
  11. CITALOPRAM [Concomitant]
     Route: 048

REACTIONS (1)
  - Circulatory collapse [Recovered/Resolved]
